FAERS Safety Report 21363986 (Version 1)
Quarter: 2022Q3

REPORT INFORMATION
  Report Type: Spontaneous
  Country: US (occurrence: None)
  Receive Date: 20220921
  Receipt Date: 20220921
  Transmission Date: 20221027
  Serious: No
  Sender: FDA-Public Use
  Company Number: None

PATIENT
  Age: 52 Year
  Sex: Female
  Weight: 68.85 kg

DRUGS (4)
  1. TRULICITY [Suspect]
     Active Substance: DULAGLUTIDE
     Indication: Diabetes mellitus
     Dates: start: 20220828, end: 20220916
  2. TACROLIMUS [Concomitant]
     Active Substance: TACROLIMUS
  3. METFORMIN [Concomitant]
     Active Substance: METFORMIN HYDROCHLORIDE
  4. LOTENSIN [Concomitant]
     Active Substance: BENAZEPRIL HYDROCHLORIDE

REACTIONS (9)
  - Fatigue [None]
  - Depressed level of consciousness [None]
  - Nausea [None]
  - Somnolence [None]
  - Fatigue [None]
  - Decreased appetite [None]
  - Depression [None]
  - Weight decreased [None]
  - Loss of personal independence in daily activities [None]
